FAERS Safety Report 18534887 (Version 1)
Quarter: 2020Q4

REPORT INFORMATION
  Report Type: Report from Study
  Country: US (occurrence: US)
  Receive Date: 20201123
  Receipt Date: 20201123
  Transmission Date: 20210114
  Serious: Yes (Hospitalization, Other)
  Sender: FDA-Public Use
  Company Number: US-BAYER-2020-220578

PATIENT
  Age: 67 Year
  Sex: Male
  Weight: 88.44 kg

DRUGS (3)
  1. MACITENTAN [Suspect]
     Active Substance: MACITENTAN
     Indication: PULMONARY HYPERTENSION
     Dosage: 10 MG, UNK
     Route: 048
  2. ADEMPAS [Suspect]
     Active Substance: RIOCIGUAT
     Indication: PULMONARY ARTERIAL HYPERTENSION
     Dosage: UNK
     Dates: start: 20200611
  3. ADEMPAS [Suspect]
     Active Substance: RIOCIGUAT
     Indication: PULMONARY ARTERIAL HYPERTENSION
     Dosage: 2 MG, TID
     Route: 048
     Dates: start: 2020

REACTIONS (9)
  - Dizziness [None]
  - Dyspepsia [None]
  - Nausea [None]
  - Small intestinal obstruction [None]
  - Gastrooesophageal reflux disease [None]
  - Ulcer [None]
  - Somnolence [None]
  - Mallory-Weiss syndrome [None]
  - Haematemesis [None]

NARRATIVE: CASE EVENT DATE: 20201007
